FAERS Safety Report 5444069-4 (Version None)
Quarter: 2007Q3

REPORT INFORMATION
  Report Type: 
  Country: None (occurrence: None)
  Receive Date: 20070905
  Receipt Date: 20070829
  Transmission Date: 20080115
  Serious: Yes (Other)
  Sender: FDA-Public Use
  Company Number: FR-GILEAD-2007-0013180

PATIENT
  Sex: Male

DRUGS (6)
  1. HEPSERA [Suspect]
     Indication: HEPATITIS B
     Route: 048
     Dates: start: 20030701
  2. ZEFFIX [Suspect]
     Indication: HEPATITIS B
     Route: 048
     Dates: start: 20010101
  3. DEPAKENE [Concomitant]
     Indication: EPILEPSY
     Route: 048
  4. PROPRANOLOL HYDROCHLORIDE [Concomitant]
     Route: 048
  5. FOSAMAX [Concomitant]
     Dates: start: 20070401
  6. PHOSPHORE [Concomitant]
     Dates: start: 20070501

REACTIONS (3)
  - CREATININE RENAL CLEARANCE DECREASED [None]
  - HYPOPHOSPHATAEMIA [None]
  - PATHOLOGICAL FRACTURE [None]
